FAERS Safety Report 13402631 (Version 11)
Quarter: 2019Q3

REPORT INFORMATION
  Report Type: Spontaneous
  Country: US (occurrence: US)
  Receive Date: 20170404
  Receipt Date: 20190725
  Transmission Date: 20191004
  Serious: Yes (Hospitalization, Other)
  Sender: FDA-Public Use
  Company Number: US-ACTELION-A-US2017-151983

PATIENT
  Sex: Male
  Weight: 101.13 kg

DRUGS (2)
  1. VELETRI [Suspect]
     Active Substance: EPOPROSTENOL
     Dosage: 17 NG/KG, PER MIN
     Route: 042
  2. VELETRI [Suspect]
     Active Substance: EPOPROSTENOL
     Indication: PULMONARY HYPERTENSION
     Dosage: 19.5 NG/KG, PER MIN
     Route: 042
     Dates: start: 201604

REACTIONS (13)
  - Yellow skin [Unknown]
  - Nausea [Unknown]
  - Vomiting [Unknown]
  - Pain management [Recovering/Resolving]
  - Liver transplant rejection [Unknown]
  - Catheter management [Unknown]
  - Dyspnoea exertional [Not Recovered/Not Resolved]
  - Abdominal pain [Unknown]
  - Hospice care [Unknown]
  - Headache [Not Recovered/Not Resolved]
  - Lung neoplasm malignant [Unknown]
  - Hepatic cancer [Unknown]
  - Pulmonary mass [Unknown]
